FAERS Safety Report 6406976-5 (Version None)
Quarter: 2009Q4

REPORT INFORMATION
  Report Type: 
  Country: None (occurrence: None)
  Receive Date: 20091020
  Receipt Date: 20091008
  Transmission Date: 20100525
  Serious: Yes (Death)
  Sender: FDA-Public Use
  Company Number: KR-PFIZER INC-2009267282

PATIENT
  Age: 75 Year

DRUGS (4)
  1. VORICONAZOLE [Suspect]
     Indication: ASPERGILLOSIS
     Dosage: 200 MG, 1X/DAY
     Route: 048
     Dates: start: 20090529, end: 20090601
  2. AMLODIPINE BESILATE [Concomitant]
     Indication: HYPERTENSION
     Dosage: 5 MG, 1X/DAY
     Route: 048
     Dates: start: 20090512, end: 20090605
  3. LEVODROPROPIZINE [Concomitant]
     Indication: PRODUCTIVE COUGH
     Dosage: 10 ML, 3X/DAY
     Route: 048
     Dates: start: 20090430, end: 20090601
  4. MEGESTROL ACETATE [Concomitant]
     Indication: DECREASED APPETITE
     Dosage: 10 ML, 2X/DAY
     Route: 048
     Dates: start: 20090515, end: 20090601

REACTIONS (1)
  - DEATH [None]
